FAERS Safety Report 4470581-0 (Version None)
Quarter: 2004Q4

REPORT INFORMATION
  Report Type: 
  Country: None (occurrence: None)
  Receive Date: 20041001
  Receipt Date: 20040917
  Transmission Date: 20050328
  Serious: Yes (Hospitalization)
  Sender: FDA-Public Use
  Company Number: S04-FRA-04993-01

PATIENT
  Age: 90 Year
  Sex: Female

DRUGS (2)
  1. EBIXA (MEMANTINE) [Suspect]
     Dosage: 10 MG BID PO
     Route: 048
     Dates: start: 20031201
  2. TERNORMINE(ATENOLOL) [Concomitant]

REACTIONS (8)
  - DEPRESSED LEVEL OF CONSCIOUSNESS [None]
  - DIFFICULTY IN WALKING [None]
  - EPILEPSY [None]
  - HYPERTONIA [None]
  - LOSS OF CONSCIOUSNESS [None]
  - MUSCLE RIGIDITY [None]
  - PARKINSON'S DISEASE [None]
  - PARKINSONISM [None]
